FAERS Safety Report 6753792-0 (Version None)
Quarter: 2010Q2

REPORT INFORMATION
  Report Type: 
  Country: None (occurrence: None)
  Receive Date: 20100601
  Receipt Date: 20100517
  Transmission Date: 20101027
  Serious: Yes (Death)
  Sender: FDA-Public Use
  Company Number: 2010061288

PATIENT
  Age: 86 Year
  Sex: Female

DRUGS (6)
  1. FRAGMIN [Suspect]
     Indication: THROMBOSIS PROPHYLAXIS
     Dosage: SUBCUTANEOUS
     Route: 058
     Dates: start: 20100216, end: 20100223
  2. ATENOLOL [Concomitant]
  3. AUGMENTIN '125' [Concomitant]
  4. CYCLIZINE (CYCLIZINE) [Concomitant]
  5. MIRTAZAPINE [Concomitant]
  6. SIMVASTATIN [Concomitant]

REACTIONS (1)
  - PLATELET COUNT DECREASED [None]
